FAERS Safety Report 8134750-0 (Version None)
Quarter: 2012Q1

REPORT INFORMATION
  Report Type: 
  Country: None (occurrence: None)
  Receive Date: 20120214
  Receipt Date: 20120206
  Transmission Date: 20120608
  Serious: Yes (Other)
  Sender: FDA-Public Use
  Company Number: ES-JNJFOC-20120204308

PATIENT
  Age: 53 Year
  Sex: Female
  Weight: 81 kg

DRUGS (1)
  1. XARELTO [Suspect]
     Indication: PROPHYLAXIS
     Route: 048
     Dates: start: 20111219, end: 20111222

REACTIONS (3)
  - ERYTHEMA [None]
  - URTICARIA [None]
  - PRURITUS [None]
